FAERS Safety Report 24028253 (Version 4)
Quarter: 2024Q3

REPORT INFORMATION
  Report Type: Spontaneous
  Country: US (occurrence: US)
  Receive Date: 20240628
  Receipt Date: 20240827
  Transmission Date: 20241017
  Serious: Yes (Other)
  Sender: ABBVIE
  Company Number: US-ABBVIE-5814143

PATIENT
  Sex: Male

DRUGS (1)
  1. UPADACITINIB [Suspect]
     Active Substance: UPADACITINIB
     Indication: Psoriatic arthropathy
     Route: 048

REACTIONS (10)
  - Hip arthroplasty [Unknown]
  - Psoriatic arthropathy [Unknown]
  - Off label use [Unknown]
  - Wrong technique in product usage process [Unknown]
  - Product storage error [Unknown]
  - Product residue present [Unknown]
  - Pharyngitis streptococcal [Unknown]
  - Off label use [Unknown]
  - Unevaluable event [Unknown]
  - Rash [Unknown]
